FAERS Safety Report 12658359 (Version 1)
Quarter: 2016Q3

REPORT INFORMATION
  Report Type: Report from Study
  Country: US (occurrence: US)
  Receive Date: 20160817
  Receipt Date: 20160817
  Transmission Date: 20161109
  Serious: Yes (Hospitalization)
  Sender: FDA-Public Use
  Company Number: US-ROCHE-1693756

PATIENT
  Age: 50 Year
  Sex: Male
  Weight: 77.5 kg

DRUGS (6)
  1. RO 5509554 (CSF-1R MAB) [Suspect]
     Active Substance: EMACTUZUMAB
     Indication: BLADDER CANCER
     Dosage: MOST RECENT DOSE 1000 MG OF EMACTUZUMAB WAS ADMINISTERED ON 28/DEC/2015?MOST RECENT DOSE PRIOR TO TH
     Route: 042
     Dates: start: 20151228
  2. ATEZOLIZUMAB [Suspect]
     Active Substance: ATEZOLIZUMAB
     Indication: BLADDER CANCER
     Dosage: MOST RECENT DOSE 1200 MG OF ATEZOLIZUMAB WAS ADMINISTERED ON 28/DEC/2015?MOST RECENT DOSE PRIOR TO T
     Route: 042
     Dates: start: 20151228
  3. DEXILANT [Concomitant]
     Active Substance: DEXLANSOPRAZOLE
     Route: 065
     Dates: start: 20150420
  4. CORICIDIN HBP COLD AND FLU [Concomitant]
     Active Substance: ACETAMINOPHEN\CHLORPHENIRAMINE MALEATE
     Route: 065
     Dates: start: 20160107
  5. LISINOPRIL. [Concomitant]
     Active Substance: LISINOPRIL
     Route: 065
     Dates: start: 20160104
  6. ZOFRAN [Concomitant]
     Active Substance: ONDANSETRON HYDROCHLORIDE
     Dosage: WHEN NEEDED
     Route: 065
     Dates: start: 20160108

REACTIONS (4)
  - Pneumonitis [Recovered/Resolved]
  - Headache [Recovered/Resolved]
  - Colitis [Recovered/Resolved]
  - Rash [Recovered/Resolved]

NARRATIVE: CASE EVENT DATE: 20160111
